FAERS Safety Report 6712274-2 (Version None)
Quarter: 2010Q2

REPORT INFORMATION
  Report Type: 
  Country: None (occurrence: None)
  Receive Date: 20100505
  Receipt Date: 20100421
  Transmission Date: 20101027
  Serious: Yes (Hospitalization)
  Sender: FDA-Public Use
  Company Number: SE-ELI_LILLY_AND_COMPANY-SE201004008182

PATIENT
  Sex: Male

DRUGS (5)
  1. CYMBALTA [Suspect]
     Indication: DEPRESSION
     Dosage: 60 MG, DAILY (1/D)
     Route: 065
     Dates: start: 20090302
  2. XANOR [Concomitant]
     Dosage: 0.5 MG, 3/D
     Route: 065
  3. SEROQUEL [Concomitant]
     Dosage: 400 MG, UNKNOWN
     Route: 065
  4. STILNOCT [Concomitant]
     Dosage: UNK, AS NEEDED
     Route: 065
  5. PROPAVAN [Concomitant]
     Dosage: UNK, AS NEEDED
     Route: 065

REACTIONS (3)
  - HYPONATRAEMIA [None]
  - PARANOIA [None]
  - WEIGHT DECREASED [None]
